FAERS Safety Report 4559413-X (Version None)
Quarter: 2005Q1

REPORT INFORMATION
  Report Type: 
  Country: None (occurrence: None)
  Receive Date: 20050119
  Receipt Date: 20050107
  Transmission Date: 20050727
  Serious: Yes (Other)
  Sender: FDA-Public Use
  Company Number: 049-0981-990480

PATIENT
  Age: 51 Year
  Sex: Male
  Weight: 112 kg

DRUGS (6)
  1. ATORVASTATIN [Suspect]
     Indication: CORONARY ARTERY DISEASE
     Dosage: 10 MG (1 IN 1 D), ORAL
     Route: 048
     Dates: start: 19990615, end: 19990810
  2. CAPTOPRIL [Concomitant]
  3. ISOSORBIDE DINITRATE [Concomitant]
  4. ACETYLSALICYLIC ACID SRT [Concomitant]
  5. MOLSIDOMINE [Concomitant]
  6. NITROGLYCERIN [Concomitant]

REACTIONS (1)
  - DIABETES MELLITUS [None]
